FAERS Safety Report 14413280 (Version 2)
Quarter: 2018Q1

REPORT INFORMATION
  Report Type: Spontaneous
  Country: FR (occurrence: FR)
  Receive Date: 20180119
  Receipt Date: 20180312
  Transmission Date: 20180509
  Serious: Yes (Hospitalization)
  Sender: FDA-Public Use
  Company Number: FR-GLAXOSMITHKLINE-FR2018GSK009256

PATIENT
  Age: 41 Year
  Sex: Male

DRUGS (2)
  1. IMIJECT [Suspect]
     Active Substance: SUMATRIPTAN SUCCINATE
     Indication: CLUSTER HEADACHE
     Dosage: UNK
     Dates: start: 201602
  2. OXYGEN. [Concomitant]
     Active Substance: OXYGEN
     Indication: CLUSTER HEADACHE

REACTIONS (4)
  - Product supply issue [Unknown]
  - Drug dose omission [Unknown]
  - Cluster headache [Recovered/Resolved]
  - Condition aggravated [Recovered/Resolved]

NARRATIVE: CASE EVENT DATE: 20180117
